FAERS Safety Report 26076248 (Version 1)
Quarter: 2025Q4

REPORT INFORMATION
  Report Type: Spontaneous
  Country: EU (occurrence: EU)
  Receive Date: 20251121
  Receipt Date: 20251121
  Transmission Date: 20260118
  Serious: Yes (Hospitalization)
  Sender: Harrow Health
  Company Number: EU-Novartis Pharma-NVSC2025BG076851

PATIENT
  Sex: Female

DRUGS (7)
  1. MAXIDEX [Suspect]
     Active Substance: DEXAMETHASONE
     Indication: Inflammation
     Dosage: UNK (6 X1 DROP)
     Route: 047
  2. BRINZOLAMIDE\TIMOLOL MALEATE [Suspect]
     Active Substance: BRINZOLAMIDE\TIMOLOL MALEATE
     Indication: Intraocular pressure increased
     Dosage: UNK (2X1 DROP)
     Route: 047
  3. ACYCLOVIR [Concomitant]
     Active Substance: ACYCLOVIR
  4. LATANOPROST [Concomitant]
     Active Substance: LATANOPROST
  5. ACETAZOLAMIDE [Concomitant]
     Active Substance: ACETAZOLAMIDE
  6. DORZOLAMIDE\TIMOLOL [Concomitant]
     Active Substance: DORZOLAMIDE\TIMOLOL
  7. BRIMONIDINE TARTRATE [Concomitant]
     Active Substance: BRIMONIDINE TARTRATE

REACTIONS (1)
  - Intraocular pressure increased [Recovered/Resolved]
